FAERS Safety Report 19276658 (Version 2)
Quarter: 2021Q2

REPORT INFORMATION
  Report Type: Report from Study
  Country: US (occurrence: US)
  Receive Date: 20210519
  Receipt Date: 20210604
  Transmission Date: 20210717
  Serious: Yes (Other)
  Sender: FDA-Public Use
  Company Number: US-EMD SERONO-9237839

PATIENT
  Age: 43 Year
  Sex: Female

DRUGS (1)
  1. REBIF [Suspect]
     Active Substance: INTERFERON BETA-1A
     Indication: PRODUCT USED FOR UNKNOWN INDICATION
     Route: 058
     Dates: start: 20180420

REACTIONS (7)
  - Hypoaesthesia [Unknown]
  - Disease recurrence [Unknown]
  - Gait disturbance [Unknown]
  - Dysarthria [Unknown]
  - Optic neuritis [Unknown]
  - Disease progression [Unknown]
  - Drooling [Unknown]

NARRATIVE: CASE EVENT DATE: 202105
